FAERS Safety Report 6830789-3 (Version None)
Quarter: 2010Q3

REPORT INFORMATION
  Report Type: 
  Country: None (occurrence: None)
  Receive Date: 20100712
  Receipt Date: 20100705
  Transmission Date: 20110219
  Serious: Yes (Death)
  Sender: FDA-Public Use
  Company Number: PHHY2010DE21410

PATIENT
  Sex: Male
  Weight: 109 kg

DRUGS (15)
  1. ALISKIREN ALI+ [Suspect]
     Indication: HYPERTENSION
     Dosage: 150 MG, QD (MORNING AND EVENING)
     Dates: start: 20090216
  2. METFORMIN HCL [Concomitant]
     Dosage: 850 MG, BID (MORNING AND EVENING)
  3. AMLODIPINE [Concomitant]
     Dosage: 5  MG/DAY (AFTERNOON)
  4. GLUCOBAY [Concomitant]
     Dosage: 100 MG PER DAY (MORNING)
  5. JANUVIA [Concomitant]
     Dosage: 100 MG/DAY (AFTERNOON)
  6. MOLSIDOMINE [Concomitant]
     Dosage: HALF TABLET IN MORNING AND EVENING
  7. MICARDIS HCT [Concomitant]
     Dosage: 12.5/80 MG/DAY (MORNING)
  8. ACETYLSALICYLIC ACID [Concomitant]
     Dosage: 100 MG/DAY (AFTERNOON)
  9. JODTHYROX [Concomitant]
     Dosage: 100 MG/DAY (MORNING)
  10. OMEGA-3-ACID ETHYL ESTERS [Concomitant]
     Dosage: 1000 MG/DAY
  11. ACE INHIBITOR NOS [Concomitant]
  12. BETA BLOCKING AGENTS [Concomitant]
  13. ALFA-ADRENOCEPTOR BLOCKING AGENTS [Concomitant]
  14. STATIN [Concomitant]
  15. CIALIS [Concomitant]
     Dosage: HALF TABLET IN MORNING

REACTIONS (2)
  - ARRHYTHMIA [None]
  - CARDIAC ARREST [None]
